FAERS Safety Report 9445683 (Version 1)
Quarter: 2013Q3

REPORT INFORMATION
  Report Type: Spontaneous
  Country: JP (occurrence: JP)
  Receive Date: 20130807
  Receipt Date: 20130807
  Transmission Date: 20140515
  Serious: Yes (Other)
  Sender: FDA-Public Use
  Company Number: JP-ROXANE LABORATORIES, INC.-2013-RO-01305RO

PATIENT
  Age: 30 Year
  Sex: Female

DRUGS (11)
  1. METHOTREXATE [Suspect]
     Indication: ADULT T-CELL LYMPHOMA/LEUKAEMIA
  2. METHOTREXATE [Suspect]
  3. CYCLOPHOSPHAMIDE TABLETS USP [Suspect]
     Indication: ADULT T-CELL LYMPHOMA/LEUKAEMIA
  4. DEXAMETHASONE [Suspect]
     Indication: ADULT T-CELL LYMPHOMA/LEUKAEMIA
  5. LEUCOVORIN CALCIUM [Suspect]
     Indication: TOXICITY TO VARIOUS AGENTS
     Route: 048
  6. ADRIAMYCIN [Suspect]
     Indication: ADULT T-CELL LYMPHOMA/LEUKAEMIA
  7. VINCRISTINE [Suspect]
     Indication: ADULT T-CELL LYMPHOMA/LEUKAEMIA
  8. CYTARABINE [Suspect]
     Indication: ADULT T-CELL LYMPHOMA/LEUKAEMIA
  9. ACETAZOLAMIDE [Suspect]
     Indication: DIURETIC THERAPY
  10. LEUCOVORIN [Suspect]
     Indication: TOXICITY TO VARIOUS AGENTS
     Route: 042
  11. VALPROIC ACID [Concomitant]
     Indication: EPILEPSY
     Dosage: 400 MG
     Route: 048

REACTIONS (9)
  - Drug clearance decreased [Recovered/Resolved]
  - Cheilitis [Unknown]
  - Malaise [Unknown]
  - Fluid retention [Unknown]
  - Aspartate aminotransferase increased [Unknown]
  - Alanine aminotransferase increased [Unknown]
  - Diarrhoea [Unknown]
  - Paronychia [Unknown]
  - Nail infection [Unknown]
